FAERS Safety Report 6506280-0 (Version None)
Quarter: 2009Q4

REPORT INFORMATION
  Report Type: 
  Country: None (occurrence: None)
  Receive Date: 20091218
  Receipt Date: 20091208
  Transmission Date: 20100525
  Serious: Yes (Hospitalization)
  Sender: FDA-Public Use
  Company Number: US-ABBOTT-09P-163-0613614-00

PATIENT
  Sex: Female
  Weight: 65.83 kg

DRUGS (2)
  1. HUMIRA [Suspect]
     Indication: CROHN'S DISEASE
     Route: 058
     Dates: start: 20091119, end: 20091119
  2. HUMIRA [Suspect]
     Route: 058
     Dates: start: 20091204

REACTIONS (7)
  - ABASIA [None]
  - ALOPECIA [None]
  - ARTHRALGIA [None]
  - BLOOD POTASSIUM DECREASED [None]
  - LYMPHADENOPATHY [None]
  - MUSCLE SPASMS [None]
  - WEIGHT DECREASED [None]
